FAERS Safety Report 25518790 (Version 1)
Quarter: 2025Q3

REPORT INFORMATION
  Report Type: Report from Study
  Country: CN (occurrence: CN)
  Receive Date: 20250704
  Receipt Date: 20250704
  Transmission Date: 20251020
  Serious: Yes (Other)
  Sender: ROCHE
  Company Number: CN-ROCHE-10000324553

PATIENT

DRUGS (20)
  1. TRASTUZUMAB [Suspect]
     Active Substance: TRASTUZUMAB
     Indication: Adenocarcinoma gastric
     Route: 065
  2. TRASTUZUMAB [Suspect]
     Active Substance: TRASTUZUMAB
     Indication: Oesophageal squamous cell carcinoma
  3. CAMRELIZUMAB [Suspect]
     Active Substance: CAMRELIZUMAB
     Indication: Adenocarcinoma gastric
     Route: 065
  4. CAMRELIZUMAB [Suspect]
     Active Substance: CAMRELIZUMAB
     Indication: Oesophageal squamous cell carcinoma
  5. SINTILIMAB [Suspect]
     Active Substance: SINTILIMAB
     Indication: Adenocarcinoma gastric
     Route: 065
  6. SINTILIMAB [Suspect]
     Active Substance: SINTILIMAB
     Indication: Oesophageal squamous cell carcinoma
  7. PEMBROLIZUMAB [Suspect]
     Active Substance: PEMBROLIZUMAB
     Indication: Adenocarcinoma gastric
     Route: 065
  8. PEMBROLIZUMAB [Suspect]
     Active Substance: PEMBROLIZUMAB
     Indication: Oesophageal squamous cell carcinoma
  9. TORIPALIMAB [Suspect]
     Active Substance: TORIPALIMAB
     Indication: Adenocarcinoma gastric
     Route: 065
  10. TORIPALIMAB [Suspect]
     Active Substance: TORIPALIMAB
     Indication: Oesophageal squamous cell carcinoma
  11. SERPLULIMAB [Suspect]
     Active Substance: SERPLULIMAB
     Indication: Adenocarcinoma gastric
     Route: 065
  12. SERPLULIMAB [Suspect]
     Active Substance: SERPLULIMAB
     Indication: Oesophageal squamous cell carcinoma
  13. TISLELIZUMAB [Suspect]
     Active Substance: TISLELIZUMAB
     Indication: Adenocarcinoma gastric
     Route: 065
  14. TISLELIZUMAB [Suspect]
     Active Substance: TISLELIZUMAB
     Indication: Oesophageal squamous cell carcinoma
  15. RIVOCERANIB [Suspect]
     Active Substance: RIVOCERANIB
     Indication: Adenocarcinoma gastric
     Route: 065
  16. RIVOCERANIB [Suspect]
     Active Substance: RIVOCERANIB
     Indication: Oesophageal squamous cell carcinoma
  17. REGORAFENIB [Suspect]
     Active Substance: REGORAFENIB
     Indication: Adenocarcinoma gastric
     Route: 065
  18. REGORAFENIB [Suspect]
     Active Substance: REGORAFENIB
     Indication: Oesophageal squamous cell carcinoma
  19. LENVATINIB [Suspect]
     Active Substance: LENVATINIB
     Indication: Adenocarcinoma gastric
     Route: 065
  20. LENVATINIB [Suspect]
     Active Substance: LENVATINIB
     Indication: Oesophageal squamous cell carcinoma

REACTIONS (12)
  - Hypophysitis [Unknown]
  - Skin toxicity [Unknown]
  - Thyroiditis [Unknown]
  - Adrenal insufficiency [Unknown]
  - Hepatotoxicity [Unknown]
  - Gastrointestinal toxicity [Unknown]
  - Pulmonary toxicity [Unknown]
  - Myopathy toxic [Unknown]
  - Cardiotoxicity [Unknown]
  - Haematotoxicity [Unknown]
  - Nephropathy toxic [Unknown]
  - Neurotoxicity [Unknown]
